FAERS Safety Report 8130368-4 (Version None)
Quarter: 2012Q1

REPORT INFORMATION
  Report Type: 
  Country: None (occurrence: None)
  Receive Date: 20120210
  Receipt Date: 20120207
  Transmission Date: 20120608
  Serious: Yes (Death, Other)
  Sender: FDA-Public Use
  Company Number: PHEH2012US003295

PATIENT
  Sex: Male

DRUGS (2)
  1. GLEEVEC [Suspect]
     Indication: CHRONIC MYELOID LEUKAEMIA
     Dates: start: 20060101, end: 20070101
  2. CHEMOTHERAPEUTICS NOS [Concomitant]
     Indication: CHRONIC MYELOID LEUKAEMIA

REACTIONS (2)
  - CHRONIC MYELOID LEUKAEMIA [None]
  - GRAFT VERSUS HOST DISEASE [None]
